FAERS Safety Report 7053891-2 (Version None)
Quarter: 2010Q4

REPORT INFORMATION
  Report Type: 
  Country: None (occurrence: None)
  Receive Date: 20101020
  Receipt Date: 20101018
  Transmission Date: 20110411
  Serious: Yes (Other)
  Sender: FDA-Public Use
  Company Number: PT-BRISTOL-MYERS SQUIBB COMPANY-15341035

PATIENT
  Age: 37 Year
  Sex: Male

DRUGS (5)
  1. ABILIFY [Suspect]
     Indication: BIPOLAR DISORDER
     Dosage: STARTED WITH 10MG; REINTRO WITH 15MG FROM 15JUN2009;REDUCED TO 10MG/D
     Route: 048
     Dates: start: 20090401
  2. CALCIUM CARBONATE [Suspect]
  3. OLANZAPINE [Suspect]
     Dosage: STARTED-10 MG TWICE/DAY;20MG NIGHT;REDUCED TO 10MG ON 09NOV2009 AND SUSPENDED ON 22FEB2010
     Dates: start: 20090401
  4. LITHIUM CARBONATE [Suspect]
     Dosage: SUSPENDED ON 22APR2010;07SEP2009 800 MG AT NIGHT
     Dates: start: 20090401
  5. HALOPERIDOL [Suspect]
     Route: 048

REACTIONS (2)
  - INSOMNIA [None]
  - MANIA [None]
